FAERS Safety Report 17036900 (Version 1)
Quarter: 2019Q4

REPORT INFORMATION
  Report Type: Spontaneous
  Country: US (occurrence: US)
  Receive Date: 20191115
  Receipt Date: 20191115
  Transmission Date: 20200122
  Serious: Yes (Other)
  Sender: FDA-Public Use
  Company Number: US-BRAINTREE LABORATORIES-190625

PATIENT
  Age: 68 Year
  Sex: Female
  Weight: 72.57 kg

DRUGS (1)
  1. SUPREP BOWEL PREP [Suspect]
     Active Substance: MAGNESIUM SULFATE\POTASSIUM SULFATE\SODIUM SULFATE
     Indication: COLONOSCOPY
     Dosage: 1 X 6 OZ. BOTTLE
     Route: 048
     Dates: start: 20191107, end: 20191107

REACTIONS (7)
  - Dysphemia [None]
  - Pruritus [None]
  - Tremor [None]
  - Aphasia [None]
  - Blood pressure increased [None]
  - Rhinorrhoea [None]
  - Nausea [None]

NARRATIVE: CASE EVENT DATE: 20191107
